FAERS Safety Report 7113889-2 (Version None)
Quarter: 2010Q4

REPORT INFORMATION
  Report Type: 
  Country: None (occurrence: None)
  Receive Date: 20101119
  Receipt Date: 20100928
  Transmission Date: 20110411
  Serious: No
  Sender: FDA-Public Use
  Company Number: US-BAYER-201021957BCC

PATIENT
  Age: 79 Year
  Sex: Female
  Weight: 54 kg

DRUGS (6)
  1. ALEVE (CAPLET) [Suspect]
     Indication: ARTHRITIS
     Dosage: TOTAL DAILY DOSE: 440 MG  UNIT DOSE: 220 MG
     Route: 048
     Dates: start: 20100926, end: 20100926
  2. ALEVE (CAPLET) [Suspect]
     Dosage: TOTAL DAILY DOSE: 440 MG  UNIT DOSE: 220 MG
     Route: 048
     Dates: start: 20100927
  3. TYLENOL (CAPLET) [Concomitant]
  4. LEVOTHYROXINE SODIUM [Concomitant]
  5. PAXIL [Concomitant]
  6. CLONAZEPAM [Concomitant]

REACTIONS (1)
  - DIARRHOEA [None]
